FAERS Safety Report 5972140-7 (Version None)
Quarter: 2008Q4

REPORT INFORMATION
  Report Type: 
  Country: None (occurrence: None)
  Receive Date: 20081124
  Receipt Date: 20081113
  Transmission Date: 20090506
  Serious: Yes (Disabling)
  Sender: FDA-Public Use
  Company Number: TPG2008A01349

PATIENT
  Age: 58 Year
  Sex: Female

DRUGS (5)
  1. COMPETACT (PIOGLITAZONE HYDROCHLORIDE, METFORMIN HYDROCHLORIDE) [Suspect]
     Indication: TYPE 2 DIABETES MELLITUS
     Dosage: PIOGLITAZONE 30 MG/METFOTMIN 1700 MG
     Route: 048
     Dates: start: 20080429, end: 20080919
  2. GLIMEPIRIDE [Concomitant]
  3. SERUM LIPID REDUCING AGENTS [Concomitant]
  4. ANTIHYPERTENSIVES [Concomitant]
  5. INSULIN [Concomitant]

REACTIONS (6)
  - AMAUROSIS [None]
  - CONDITION AGGRAVATED [None]
  - CONJUNCTIVAL OEDEMA [None]
  - DIABETIC RETINOPATHY [None]
  - EYELID OEDEMA [None]
  - VISUAL ACUITY REDUCED [None]
